FAERS Safety Report 16317338 (Version 1)
Quarter: 2019Q2

REPORT INFORMATION
  Report Type: Other
  Country: IT (occurrence: IT)
  Receive Date: 20190516
  Receipt Date: 20190516
  Transmission Date: 20190711
  Serious: No
  Sender: FDA-Public Use
  Company Number: IT-LUPIN PHARMACEUTICALS INC.-2019-01608

PATIENT
  Age: 40 Year
  Sex: Female

DRUGS (3)
  1. PAROXETINE. [Suspect]
     Active Substance: PAROXETINE
     Indication: DEPRESSION
     Dosage: 20 MILLIGRAM, QD
     Route: 048
     Dates: start: 20120101, end: 20190122
  2. PRAMIPEXOLE. [Suspect]
     Active Substance: PRAMIPEXOLE
     Indication: PRODUCT USED FOR UNKNOWN INDICATION
     Dosage: 0.27 MILLIGRAM, QD
     Route: 048
     Dates: start: 20180101, end: 20190122
  3. PLASIL                             /00041901/ [Suspect]
     Active Substance: METOCLOPRAMIDE
     Indication: NAUSEA
     Dosage: 3 DOSAGE FORM, SINGLE
     Route: 048
     Dates: start: 20190120, end: 20190122

REACTIONS (2)
  - Dyskinesia [Unknown]
  - Clonus [Unknown]

NARRATIVE: CASE EVENT DATE: 20190122
